FAERS Safety Report 14738646 (Version 3)
Quarter: 2018Q2

REPORT INFORMATION
  Report Type: Spontaneous
  Country: JP (occurrence: JP)
  Receive Date: 20180409
  Receipt Date: 20180502
  Transmission Date: 20180711
  Serious: Yes (Congenital Anomaly)
  Sender: FDA-Public Use
  Company Number: JP-LUNDBECK-DKLU2046856

PATIENT
  Sex: Male
  Weight: 3 kg

DRUGS (6)
  1. EXCEGRAN [Suspect]
     Active Substance: ZONISAMIDE
     Route: 064
  2. MYSTAN [Suspect]
     Active Substance: CLOBAZAM
     Indication: PRODUCT USED FOR UNKNOWN INDICATION
     Route: 064
  3. EXCEGRAN [Suspect]
     Active Substance: ZONISAMIDE
     Route: 064
  4. EXCEGRAN [Suspect]
     Active Substance: ZONISAMIDE
     Indication: PRODUCT USED FOR UNKNOWN INDICATION
     Route: 064
  5. VALERIN [Suspect]
     Active Substance: VALPROATE SODIUM
     Route: 064
  6. VALERIN [Suspect]
     Active Substance: VALPROATE SODIUM
     Indication: PRODUCT USED FOR UNKNOWN INDICATION
     Route: 064

REACTIONS (6)
  - Intellectual disability [Unknown]
  - Foetal exposure during pregnancy [Unknown]
  - Hypothyroidism [Unknown]
  - Hemivertebra [Unknown]
  - Developmental delay [Unknown]
  - Thyroglossal cyst [Unknown]
